FAERS Safety Report 5564888-3 (Version None)
Quarter: 2007Q4

REPORT INFORMATION
  Report Type: 
  Country: None (occurrence: None)
  Receive Date: 20071218
  Receipt Date: 20071207
  Transmission Date: 20080405
  Serious: Yes (Hospitalization)
  Sender: FDA-Public Use
  Company Number: JP-JNJFOC-20071110669

PATIENT
  Sex: Male

DRUGS (15)
  1. CRAVIT [Suspect]
     Indication: NASOPHARYNGITIS
     Route: 048
  2. SOLANTAL [Concomitant]
     Indication: NASOPHARYNGITIS
     Route: 048
  3. MEDICON [Concomitant]
     Indication: NASOPHARYNGITIS
     Route: 048
  4. MUCODYNE [Concomitant]
     Indication: BRONCHITIS
     Route: 048
  5. DASEN [Concomitant]
     Indication: BRONCHITIS
     Route: 048
  6. BAKUMONDOUTO [Concomitant]
     Indication: BRONCHITIS
     Route: 048
  7. CLARITHROMYCIN [Concomitant]
     Indication: BRONCHITIS
     Route: 048
  8. SPIROPENT [Concomitant]
     Indication: BRONCHITIS
     Route: 048
  9. MUCOSAL [Concomitant]
     Indication: BRONCHITIS
     Route: 048
  10. VITAMEDIN [Concomitant]
     Route: 048
  11. RADEN [Concomitant]
     Route: 048
  12. AMLODIN [Concomitant]
     Indication: HYPERTENSION
     Route: 048
  13. DOXAZOSIN MESYLATE [Concomitant]
     Indication: HYPERTENSION
     Route: 048
  14. PREDNISOLONE [Concomitant]
     Route: 048
  15. PREDNISOLONE [Concomitant]
     Indication: ASTHMA
     Route: 048

REACTIONS (3)
  - DISSEMINATED INTRAVASCULAR COAGULATION [None]
  - DRUG ERUPTION [None]
  - LIVER DISORDER [None]
